APPROVED DRUG PRODUCT: REZIPRES
Active Ingredient: EPHEDRINE HYDROCHLORIDE
Strength: 23.5MG/5ML (4.7MG/ML)
Dosage Form/Route: SOLUTION;INTRAVENOUS
Application: N213536 | Product #001
Applicant: DR REDDYS LABORATORIES SA
Approved: Jun 14, 2021 | RLD: Yes | RS: No | Type: DISCN